FAERS Safety Report 4677623-8 (Version None)
Quarter: 2005Q2

REPORT INFORMATION
  Report Type: 
  Country: None (occurrence: None)
  Receive Date: 20050531
  Receipt Date: 20050414
  Transmission Date: 20051028
  Serious: Yes (Other)
  Sender: FDA-Public Use
  Company Number: US-ROCHE-402094

PATIENT
  Age: 41 Year
  Sex: Female

DRUGS (20)
  1. PEGASYS [Suspect]
     Dosage: DOSAGE REGIMEN REPORTED AS WEEKLY.
     Route: 058
     Dates: start: 20041105, end: 20050317
  2. PEGASYS [Suspect]
     Route: 058
     Dates: start: 20050319, end: 20050415
  3. COPEGUS [Suspect]
     Route: 048
     Dates: start: 20041105, end: 20050422
  4. HEPATITIS B VACCINE [Concomitant]
  5. NEXIUM [Concomitant]
     Dates: end: 20050216
  6. BETA BLOCKER [Concomitant]
     Indication: ANGINA PECTORIS
     Dosage: AT NIGHT.
     Dates: start: 20050216
  7. TOPROL-XL [Concomitant]
     Dosage: AT BEDTIME. TDD DOSE INCREASED TO 50 MG ON 08 MAR 2005.
     Dates: start: 20050301
  8. BLUE STAR OINTMENT [Concomitant]
     Indication: FUNGAL RASH
     Dates: start: 20050316
  9. NEOSPORIN [Concomitant]
     Indication: FACIAL PAIN
     Route: 061
     Dates: start: 20050316
  10. BENICAR [Concomitant]
  11. ZOLOFT [Concomitant]
  12. BUSPAR [Concomitant]
  13. BENADRYL [Concomitant]
     Dosage: PRN.
     Dates: start: 20050316
  14. NATURAL TEARS [Concomitant]
     Dates: start: 20050316
  15. ANTITHYROID [Concomitant]
  16. ZITHROMAX [Concomitant]
     Dates: start: 20050415
  17. POTASSIUM CHLORIDE [Concomitant]
     Dates: start: 20050415
  18. CODEINE SYRUP [Concomitant]
     Indication: COUGH
     Dates: start: 20050415
  19. ANTIEMETIC [Concomitant]
     Dates: start: 20050415
  20. BIAXIN [Concomitant]
     Dates: start: 20050415, end: 20050421

REACTIONS (44)
  - ALOPECIA [None]
  - ANGINA PECTORIS [None]
  - BASEDOW'S DISEASE [None]
  - BLOOD POTASSIUM DECREASED [None]
  - BLOOD PRESSURE INCREASED [None]
  - BLOOD THYROID STIMULATING HORMONE DECREASED [None]
  - BLOOD THYROID STIMULATING HORMONE INCREASED [None]
  - BREAST DISCHARGE [None]
  - BREAST INJURY [None]
  - BREAST PAIN [None]
  - BRONCHITIS [None]
  - COORDINATION ABNORMAL [None]
  - COUGH [None]
  - DEHYDRATION [None]
  - DEPRESSION [None]
  - DIARRHOEA [None]
  - DRY EYE [None]
  - DRY SKIN [None]
  - DYSPHONIA [None]
  - DYSPNOEA [None]
  - EPISTAXIS [None]
  - FATIGUE [None]
  - FEELING ABNORMAL [None]
  - GINGIVAL BLEEDING [None]
  - HAEMATOCHEZIA [None]
  - HEADACHE [None]
  - HEART RATE INCREASED [None]
  - HYPERTHYROIDISM [None]
  - HYPOTHYROIDISM [None]
  - INFLUENZA [None]
  - INTERNATIONAL NORMALISED RATIO DECREASED [None]
  - LARYNGITIS [None]
  - LOSS OF CONSCIOUSNESS [None]
  - MENSTRUAL DISORDER [None]
  - MOOD SWINGS [None]
  - NASAL CONGESTION [None]
  - NAUSEA [None]
  - RASH [None]
  - RED BLOOD CELL SEDIMENTATION RATE INCREASED [None]
  - THROAT IRRITATION [None]
  - TINEA INFECTION [None]
  - TONSILLITIS [None]
  - WEIGHT INCREASED [None]
  - WHITE BLOOD CELL COUNT DECREASED [None]
